FAERS Safety Report 13565629 (Version 1)
Quarter: 2017Q2

REPORT INFORMATION
  Report Type: Spontaneous
  Country: US (occurrence: US)
  Receive Date: 20170519
  Receipt Date: 20170519
  Transmission Date: 20170830
  Serious: No
  Sender: FDA-Public Use
  Company Number: US-BION-20160164

PATIENT
  Age: 79 Month
  Sex: Female
  Weight: 64.41 kg

DRUGS (5)
  1. LOSARTIN [Concomitant]
     Active Substance: LOSARTAN
     Indication: BLOOD PRESSURE INCREASED
     Dosage: 1 DF DAILY
  2. MOTRIN IB [Suspect]
     Active Substance: IBUPROFEN
     Dosage: 1-2 EVERY 5 HOURS
     Route: 048
  3. MOTRIN IB [Suspect]
     Active Substance: IBUPROFEN
     Indication: ANALGESIC THERAPY
     Dosage: 2 DF TAKEN EVERY 5-6 HOURS
     Route: 048
  4. LOVASTATIN. [Concomitant]
     Active Substance: LOVASTATIN
     Indication: BLOOD CHOLESTEROL INCREASED
     Dosage: 1 DF DAILY
  5. HYDROCODONE [Concomitant]
     Active Substance: HYDROCODONE
     Indication: POSTOPERATIVE ANALGESIA
     Dosage: 1 EVERY 6 HOURS

REACTIONS (3)
  - Malaise [Unknown]
  - Nausea [Unknown]
  - Diarrhoea [Unknown]
